FAERS Safety Report 16285560 (Version 1)
Quarter: 2019Q2

REPORT INFORMATION
  Report Type: Spontaneous
  Country: US (occurrence: US)
  Receive Date: 20190506
  Receipt Date: 20190506
  Transmission Date: 20190711
  Serious: Yes (Hospitalization)
  Sender: FDA-Public Use
  Company Number: None

PATIENT
  Age: 21 Year
  Sex: Female
  Weight: 67.5 kg

DRUGS (1)
  1. TRI-VYLIBRA [Suspect]
     Active Substance: ETHINYL ESTRADIOL\NORGESTIMATE
     Route: 048

REACTIONS (6)
  - Vaginal haemorrhage [None]
  - Weight decreased [None]
  - Diarrhoea [None]
  - Vomiting [None]
  - Impaired work ability [None]
  - Dehydration [None]

NARRATIVE: CASE EVENT DATE: 20190124
